FAERS Safety Report 20355958 (Version 1)
Quarter: 2022Q1

REPORT INFORMATION
  Report Type: Report from Study
  Country: BR (occurrence: BR)
  Receive Date: 20220120
  Receipt Date: 20220120
  Transmission Date: 20220423
  Serious: Yes (Other)
  Sender: FDA-Public Use
  Company Number: BR-TAKEDA-2022TUS002278

PATIENT
  Sex: Female
  Weight: 47 kg

DRUGS (1)
  1. HUMAN IMMUNOGLOBULIN G\HYALURONIDASE RECOMBINANT HUMAN [Suspect]
     Active Substance: HUMAN IMMUNOGLOBULIN G\HYALURONIDASE RECOMBINANT HUMAN
     Indication: Primary immunodeficiency syndrome
     Dosage: 300 MILLILITER, Q4WEEKS
     Route: 058
     Dates: start: 202106

REACTIONS (2)
  - Suspected COVID-19 [Recovered/Resolved]
  - Nasopharyngitis [Recovered/Resolved]
